FAERS Safety Report 6304945-7 (Version None)
Quarter: 2009Q3

REPORT INFORMATION
  Report Type: 
  Country: None (occurrence: None)
  Receive Date: 20090811
  Receipt Date: 20090807
  Transmission Date: 20100115
  Serious: Yes (Hospitalization)
  Sender: FDA-Public Use
  Company Number: FR-BRISTOL-MYERS SQUIBB COMPANY-14651657

PATIENT
  Age: 73 Year
  Sex: Male
  Weight: 55 kg

DRUGS (4)
  1. ERBITUX [Suspect]
     Indication: GASTROINTESTINAL CARCINOMA
     Dosage: 26MAY08-26MAY08:407.5 MG WITHDRAWN ON 26MAY08
     Route: 042
     Dates: start: 20080519, end: 20080526
  2. CARBOPLATIN [Suspect]
     Indication: NEOPLASM MALIGNANT
     Route: 042
     Dates: start: 20080519, end: 20080519
  3. TAXOTERE [Suspect]
     Indication: NEOPLASM MALIGNANT
     Route: 042
     Dates: start: 20080519, end: 20080519
  4. FLUOROURACIL [Suspect]
     Indication: NEOPLASM MALIGNANT
     Dosage: SOLN FOR INJ
     Route: 042
     Dates: start: 20080519, end: 20080523

REACTIONS (4)
  - FEBRILE BONE MARROW APLASIA [None]
  - HICCUPS [None]
  - NAUSEA [None]
  - VOMITING [None]
